FAERS Safety Report 10045652 (Version 1)
Quarter: 2014Q1

REPORT INFORMATION
  Report Type: Spontaneous
  Country: US (occurrence: None)
  Receive Date: 20140306
  Receipt Date: 20140306
  Transmission Date: 20141002
  Serious: Yes (Hospitalization)
  Sender: FDA-Public Use
  Company Number: 163-21880-13060331

PATIENT
  Age: 75 Year
  Sex: Male

DRUGS (11)
  1. REVLIMID (LENALIDOMIDE) (10 MILLIGRAM, CAPSULES) [Suspect]
     Indication: PLASMA CELL MYELOMA
     Dosage: 1 IN 1 D
     Route: 048
     Dates: start: 201108
  2. NEURONTIN (GABAPENTIN) [Concomitant]
  3. CYMBALTA [Concomitant]
  4. LABETALOL [Concomitant]
  5. CRESTOR (ROSUVASTATIN) [Concomitant]
  6. VALTREX (VALACICLOVIR HYDROCHLORIDE) [Concomitant]
  7. OXYCONTIN (OXYCODONE HYDROCHLORIDE) [Concomitant]
  8. TOFRANIL (IMIPRAMINE HYDROCHLORIDE) [Concomitant]
  9. XANAX (ALPRAZOLAM) [Concomitant]
  10. NEXIUM (ESOMEPRAZOLE) [Concomitant]
  11. IRON [Concomitant]

REACTIONS (2)
  - White blood cell count decreased [None]
  - Infection [None]
